FAERS Safety Report 5372623-7 (Version None)
Quarter: 2007Q2

REPORT INFORMATION
  Report Type: 
  Country: None (occurrence: None)
  Receive Date: 20070627
  Receipt Date: 20070615
  Transmission Date: 20071010
  Serious: Yes (Other)
  Sender: FDA-Public Use
  Company Number: NL-PFIZER INC-2007047370

PATIENT
  Sex: Male
  Weight: 102 kg

DRUGS (8)
  1. LYRICA [Suspect]
     Indication: NEUROPATHY PERIPHERAL
     Route: 048
  2. METFORMIN HCL [Concomitant]
     Route: 048
  3. PARIET [Concomitant]
     Route: 048
  4. RENITEC [Concomitant]
     Route: 048
  5. AMLODIPINE [Concomitant]
     Route: 048
  6. TRIAMTERENE [Concomitant]
     Route: 048
  7. PRAVASTATIN [Concomitant]
     Route: 048
  8. INSULIN [Concomitant]

REACTIONS (1)
  - HAEMORRHAGIC DIATHESIS [None]
